FAERS Safety Report 19746600 (Version 2)
Quarter: 2021Q3

REPORT INFORMATION
  Report Type: Spontaneous
  Country: US (occurrence: US)
  Receive Date: 20210825
  Receipt Date: 20210928
  Transmission Date: 20211014
  Serious: Yes (Hospitalization)
  Sender: FDA-Public Use
  Company Number: US-SA-2021SA273611

PATIENT
  Age: 18 Year
  Sex: Male
  Weight: 73.5 kg

DRUGS (5)
  1. METOPROLOL SUCCINATE. [Suspect]
     Active Substance: METOPROLOL SUCCINATE
     Indication: HEART RATE INCREASED
     Dosage: 25 MG, QD
     Dates: start: 20210729, end: 20210730
  2. PROMETHAZINE HYDROCHLORIDE. [Suspect]
     Active Substance: PROMETHAZINE HYDROCHLORIDE
     Indication: VOMITING
  3. ALLEGRA [Suspect]
     Active Substance: FEXOFENADINE HYDROCHLORIDE
     Indication: HYPERSENSITIVITY
     Dosage: 300 MG, PRN
     Route: 048
     Dates: start: 20210727, end: 20210727
  4. PFIZER?BIONTECH COVID?19 VACCINE [Suspect]
     Active Substance: TOZINAMERAN
     Indication: COVID-19 IMMUNISATION
     Dosage: UNK
     Route: 030
     Dates: start: 20210720
  5. ONDANSETRON [Suspect]
     Active Substance: ONDANSETRON
     Indication: VOMITING
     Dosage: UNK
     Dates: start: 20210729

REACTIONS (18)
  - Chest pain [Not Recovered/Not Resolved]
  - Hypertension [Recovered/Resolved]
  - Blood bilirubin increased [Unknown]
  - Vomiting [Unknown]
  - Pain in extremity [Unknown]
  - Fibrin D dimer increased [Unknown]
  - Blood glucose increased [Unknown]
  - Troponin decreased [Unknown]
  - Heart rate increased [Recovered/Resolved]
  - Urticaria [Unknown]
  - Urine ketone body present [Recovering/Resolving]
  - Blood creatinine decreased [Unknown]
  - Tachycardia [Recovered/Resolved]
  - Electrolyte imbalance [Recovering/Resolving]
  - Blood alkaline phosphatase decreased [Unknown]
  - Blood pressure increased [Unknown]
  - Dyspnoea [Recovered/Resolved]
  - Neutrophil count increased [Unknown]

NARRATIVE: CASE EVENT DATE: 20210728
